FAERS Safety Report 7381949-7 (Version None)
Quarter: 2011Q1

REPORT INFORMATION
  Report Type: 
  Country: None (occurrence: None)
  Receive Date: 20110324
  Receipt Date: 20110324
  Transmission Date: 20110831
  Serious: Yes (Death, Life-Threatening, Hospitalization, Disabling, Congenital Anomaly, Other)
  Sender: FDA-Public Use
  Company Number: None

PATIENT
  Age: 24 Year
  Sex: Male
  Weight: 90.2658 kg

DRUGS (1)
  1. OXYCONTIN [Suspect]
     Indication: DRUG ABUSE
     Dosage: 40MG ONCE
     Dates: start: 20110228, end: 20110228

REACTIONS (10)
  - RENAL FAILURE [None]
  - OVERDOSE [None]
  - RESPIRATORY ARREST [None]
  - DIALYSIS [None]
  - COMA [None]
  - MUSCLE INJURY [None]
  - INTENTIONAL DRUG MISUSE [None]
  - CARDIAC ARREST [None]
  - RESPIRATORY FAILURE [None]
  - HEPATIC FAILURE [None]
